FAERS Safety Report 25362820 (Version 1)
Quarter: 2025Q2

REPORT INFORMATION
  Report Type: Report from Study
  Country: BR (occurrence: BR)
  Receive Date: 20250527
  Receipt Date: 20250527
  Transmission Date: 20250716
  Serious: Yes (Hospitalization, Other)
  Sender: TAKEDA
  Company Number: BR-TAKEDA-2025TUS048555

PATIENT
  Age: 5 Year
  Sex: Male

DRUGS (2)
  1. HUMAN IMMUNOGLOBULIN G\HYALURONIDASE RECOMBINANT HUMAN [Suspect]
     Active Substance: HUMAN IMMUNOGLOBULIN G\HYALURONIDASE (HUMAN RECOMBINANT)
     Indication: Secondary immunodeficiency
  2. PNEUMOCOCCAL VACCINE POLYVALENT NOS [Suspect]
     Active Substance: PNEUMOCOCCAL VACCINE, POLYVALENT
     Indication: Product used for unknown indication

REACTIONS (11)
  - Hypothyroidism [Unknown]
  - Septic shock [Unknown]
  - Dehydration [Unknown]
  - Autism spectrum disorder [Unknown]
  - Generalised oedema [Unknown]
  - Infection [Unknown]
  - Vaccination failure [Unknown]
  - Mean cell volume increased [Unknown]
  - Agitation [Unknown]
  - Respiratory tract infection [Unknown]
  - Erythema [Unknown]

NARRATIVE: CASE EVENT DATE: 20240312
